FAERS Safety Report 8502766-8 (Version None)
Quarter: 2012Q3

REPORT INFORMATION
  Report Type: 
  Country: None (occurrence: None)
  Receive Date: 20120711
  Receipt Date: 20120704
  Transmission Date: 20120928
  Serious: Yes (Hospitalization, Other)
  Sender: FDA-Public Use
  Company Number: CA-ABBOTT-12P-028-0943654-00

PATIENT
  Sex: Female

DRUGS (13)
  1. BISACODYL [Concomitant]
     Indication: PRODUCT USED FOR UNKNOWN INDICATION
  2. CRESTOR [Concomitant]
     Indication: PRODUCT USED FOR UNKNOWN INDICATION
  3. RABEPRAZOLE SODIUM [Concomitant]
     Indication: PRODUCT USED FOR UNKNOWN INDICATION
  4. HUMIRA [Suspect]
  5. HUMIRA [Suspect]
     Dates: start: 20120606
  6. HUMIRA [Suspect]
     Indication: RHEUMATOID ARTHRITIS
     Route: 058
     Dates: start: 20001119
  7. IRON [Concomitant]
     Indication: PRODUCT USED FOR UNKNOWN INDICATION
  8. PERINDOPRIL ERBUMINE [Concomitant]
     Indication: PRODUCT USED FOR UNKNOWN INDICATION
  9. MELOXICAM [Concomitant]
     Indication: PRODUCT USED FOR UNKNOWN INDICATION
  10. NORTRIPTYLINE HCL [Concomitant]
     Indication: PRODUCT USED FOR UNKNOWN INDICATION
  11. ACTONEL [Concomitant]
     Indication: PRODUCT USED FOR UNKNOWN INDICATION
  12. METHOTREXATE [Concomitant]
     Indication: PRODUCT USED FOR UNKNOWN INDICATION
  13. AMLODIPINE [Concomitant]
     Indication: PRODUCT USED FOR UNKNOWN INDICATION

REACTIONS (6)
  - FALL [None]
  - PRESYNCOPE [None]
  - SYNCOPE [None]
  - MEMORY IMPAIRMENT [None]
  - CARDIAC DISORDER [None]
  - BIFASCICULAR BLOCK [None]
